FAERS Safety Report 15992440 (Version 2)
Quarter: 2019Q1

REPORT INFORMATION
  Report Type: Spontaneous
  Country: US (occurrence: US)
  Receive Date: 20190221
  Receipt Date: 20190311
  Transmission Date: 20190418
  Serious: No
  Sender: FDA-Public Use
  Company Number: US-ALLERGAN-1839445US

PATIENT
  Sex: Female

DRUGS (2)
  1. CEPHALEXIN. [Concomitant]
     Active Substance: CEPHALEXIN
     Indication: CYSTITIS
     Dosage: 500 MG, TID
     Route: 048
  2. OXYTROL FOR WOMEN [Suspect]
     Active Substance: OXYBUTYNIN
     Indication: POLLAKIURIA
     Dosage: 1 DF, QD
     Route: 062

REACTIONS (2)
  - Inappropriate schedule of product administration [Unknown]
  - Application site erythema [Not Recovered/Not Resolved]
